FAERS Safety Report 21952118 (Version 1)
Quarter: 2023Q1

REPORT INFORMATION
  Report Type: Report from Study
  Country: US (occurrence: US)
  Receive Date: 20230203
  Receipt Date: 20230203
  Transmission Date: 20230417
  Serious: No
  Sender: FDA-Public Use
  Company Number: US-EXELIXIS-CABO-22049503

PATIENT
  Sex: Female

DRUGS (4)
  1. CABOMETYX [Suspect]
     Active Substance: CABOZANTINIB S-MALATE
     Indication: Renal cancer
     Dosage: 40 MG
  2. CABOMETYX [Suspect]
     Active Substance: CABOZANTINIB S-MALATE
     Dosage: 20 MG
  3. NIFEDIPINE [Concomitant]
     Active Substance: NIFEDIPINE
     Dosage: UNK
  4. LOSARTAN [Concomitant]
     Active Substance: LOSARTAN
     Dosage: UNK

REACTIONS (7)
  - Oxygen saturation decreased [Unknown]
  - Blood pressure fluctuation [Unknown]
  - Dizziness [Unknown]
  - Headache [Unknown]
  - Nausea [Unknown]
  - Dyspnoea [Unknown]
  - Hepatic enzyme increased [Unknown]
